FAERS Safety Report 7315188-2 (Version None)
Quarter: 2011Q1

REPORT INFORMATION
  Report Type: 
  Country: None (occurrence: None)
  Receive Date: 20110225
  Receipt Date: 20110214
  Transmission Date: 20110831
  Serious: Yes (Hospitalization)
  Sender: FDA-Public Use
  Company Number: US-JNJFOC-20110101445

PATIENT
  Sex: Male
  Weight: 70.99 kg

DRUGS (4)
  1. MULTI-VITAMINS [Concomitant]
  2. INFLIXIMAB, RECOMBINANT [Suspect]
     Indication: INFLAMMATORY BOWEL DISEASE
     Route: 042
  3. MERCAPTOPURINE [Concomitant]
  4. PROBIOTICS [Concomitant]

REACTIONS (1)
  - APPENDICITIS [None]
